FAERS Safety Report 9096350 (Version 3)
Quarter: 2014Q1

REPORT INFORMATION
  Report Type: Report from Study
  Country: CA (occurrence: CA)
  Receive Date: 20130207
  Receipt Date: 20140313
  Transmission Date: 20141002
  Serious: Yes (Hospitalization, Other)
  Sender: FDA-Public Use
  Company Number: CA-ELI_LILLY_AND_COMPANY-CA201301010103

PATIENT
  Age: 71 Year
  Sex: Female

DRUGS (15)
  1. TERIPARATIDE [Suspect]
     Indication: OSTEOPOROSIS
     Dosage: 20MCG, OD
     Route: 058
     Dates: start: 20120425, end: 20130121
  2. TERIPARATIDE [Suspect]
     Dosage: 20MCG, OD
     Route: 058
     Dates: start: 20130129
  3. NOVORAPID [Suspect]
     Indication: PRODUCT USED FOR UNKNOWN INDICATION
     Route: 065
  4. LANTUS [Suspect]
     Indication: PRODUCT USED FOR UNKNOWN INDICATION
     Route: 065
  5. LYRICA [Concomitant]
     Route: 065
  6. RATIO-RAMIPRIL [Concomitant]
     Route: 065
  7. LIPITOR [Concomitant]
     Route: 065
  8. PRO-QUETIAPINE [Concomitant]
     Route: 065
  9. PANTOPRAZOL [Concomitant]
     Route: 065
  10. APO-CYCLOBENZAPRINE [Concomitant]
     Route: 065
  11. SENNOSIDES A+B [Concomitant]
     Route: 065
  12. COLACE [Concomitant]
     Route: 065
  13. EPIVAL                             /00228502/ [Concomitant]
     Route: 065
  14. VITAMIN E                          /01552201/ [Concomitant]
     Route: 065
  15. VITAMIN C                          /00008001/ [Concomitant]
     Route: 065

REACTIONS (12)
  - Transient ischaemic attack [Not Recovered/Not Resolved]
  - Blood glucose decreased [Not Recovered/Not Resolved]
  - Nerve compression [Unknown]
  - Hypoaesthesia [Recovered/Resolved]
  - Paraesthesia [Not Recovered/Not Resolved]
  - Gait disturbance [Not Recovered/Not Resolved]
  - Joint instability [Not Recovered/Not Resolved]
  - Pain in extremity [Not Recovered/Not Resolved]
  - Back pain [Not Recovered/Not Resolved]
  - Fall [Unknown]
  - Fall [Unknown]
  - Fall [Not Recovered/Not Resolved]
